FAERS Safety Report 9643279 (Version 3)
Quarter: 2014Q1

REPORT INFORMATION
  Report Type: Spontaneous
  Country: US (occurrence: None)
  Receive Date: 20131022
  Receipt Date: 20140212
  Transmission Date: 20141002
  Serious: Yes (Other)
  Sender: FDA-Public Use
  Company Number: AUR-APL-2013-08758

PATIENT
  Age: 45 Year
  Sex: Female
  Weight: 118 kg

DRUGS (6)
  1. METFORMIN [Suspect]
     Indication: DIABETES MELLITUS
     Dosage: 2000 MG (1000 MG, 2 IN 1 D), ORAL
  2. GABAPENTIN [Suspect]
     Indication: NEURALGIA
     Dosage: 1200 MG, (BY TAKING TWO TABLETS OF 600 MG AT ONCE), 2X/DAY, ORAL
     Dates: start: 201307
  3. LISINOPRIL (LISINOPRIL) [Concomitant]
  4. LYRICA (PREGABALIN) [Concomitant]
  5. GLIPIZIDE (GLIPIZIDE) [Concomitant]
  6. FISH OIL (FISH OIL) [Concomitant]

REACTIONS (5)
  - Neuralgia [None]
  - Diabetic neuropathy [None]
  - Blood glucose increased [None]
  - Protein urine present [None]
  - Drug ineffective [None]
